FAERS Safety Report 7915443-9 (Version None)
Quarter: 2011Q4

REPORT INFORMATION
  Report Type: 
  Country: None (occurrence: None)
  Receive Date: 20111115
  Receipt Date: 20111108
  Transmission Date: 20120403
  Serious: Yes (Hospitalization, Other)
  Sender: FDA-Public Use
  Company Number: PHEH2010US03503

PATIENT
  Sex: Female
  Weight: 88.889 kg

DRUGS (37)
  1. MORPHINE [Concomitant]
  2. METOCLOPRAMIDE [Concomitant]
  3. LOPRESSOR [Concomitant]
     Dosage: 5 MG, UNK
     Route: 042
  4. ZOMETA [Suspect]
     Indication: MULTIPLE MYELOMA
  5. DECADRON [Suspect]
     Dosage: 4 MG, BID
  6. BENICAR [Concomitant]
     Dosage: 20 MG, QD
  7. MULTI-VITAMIN [Concomitant]
  8. IMIPENEM [Concomitant]
  9. DEXAMETHASONE [Concomitant]
  10. PERIDEX [Concomitant]
  11. LOPRESSOR [Concomitant]
     Dosage: 50 MG, QD
     Route: 048
  12. LEVOFLOXACIN [Concomitant]
     Dosage: 500 MG, UNK
     Route: 042
  13. ZOMETA [Suspect]
     Indication: OSTEOPOROSIS
  14. NOVOLOG [Concomitant]
  15. FLAGYL [Concomitant]
     Dosage: 500 MG, Q12H
     Route: 048
  16. PROPOFOL [Concomitant]
  17. NORVASC [Concomitant]
     Dosage: 10 MG, QD
  18. PENICILLIN G POTASSIUM [Concomitant]
     Dosage: UNK UKN, Q6H
     Route: 042
  19. ZOMETA [Suspect]
     Indication: OSTEOARTHRITIS
     Dates: end: 20090201
  20. CLINDAMYCIN [Suspect]
  21. OXYCODONE HCL [Concomitant]
  22. FUROSEMIDE [Concomitant]
  23. LIDOCAINE [Concomitant]
     Dosage: 3 DF, ONCE/SINGLE
     Route: 048
  24. DYNACIRC [Concomitant]
     Dosage: 5 MG, QD
     Route: 048
  25. DECADRON [Suspect]
     Dosage: 4 MG, TID
  26. METOPROLOL SUCCINATE [Concomitant]
  27. REVLIMID [Concomitant]
  28. CIPRO [Concomitant]
  29. VANCOMYCIN [Concomitant]
     Route: 042
  30. HEPARIN [Concomitant]
  31. ERTAPENEM [Concomitant]
  32. HYDROCHLOROTHIAZIDE [Concomitant]
     Dosage: 25 MG, QD
     Route: 048
  33. ONDASETRON [Concomitant]
  34. DILAUDID [Concomitant]
  35. WARFARIN SODIUM [Concomitant]
  36. AMOXICILLIN [Concomitant]
     Dosage: 500 MG, Q8H
     Route: 048
  37. LASIX [Concomitant]

REACTIONS (100)
  - OSTEONECROSIS OF JAW [None]
  - INTERVERTEBRAL DISC PROTRUSION [None]
  - NEOPLASM PROGRESSION [None]
  - NEOPLASM MALIGNANT [None]
  - PATHOLOGICAL FRACTURE [None]
  - PANCYTOPENIA [None]
  - CARDIAC FAILURE CONGESTIVE [None]
  - CELLULITIS [None]
  - BREATH ODOUR [None]
  - ERYTHEMA [None]
  - CHOLELITHIASIS [None]
  - UPPER RESPIRATORY TRACT INFECTION [None]
  - OSTEOPENIA [None]
  - IMMUNODEFICIENCY [None]
  - NEPHROLITHIASIS [None]
  - METASTASES TO BONE [None]
  - PHARYNGEAL ABSCESS [None]
  - OSTEOMYELITIS [None]
  - LOOSE TOOTH [None]
  - HYPOKALAEMIA [None]
  - FALL [None]
  - GASTROOESOPHAGEAL REFLUX DISEASE [None]
  - GAIT DISTURBANCE [None]
  - CLAVICLE FRACTURE [None]
  - INFECTION [None]
  - DYSPHAGIA [None]
  - ANXIETY [None]
  - LIFE EXPECTANCY SHORTENED [None]
  - NECK PAIN [None]
  - COMPRESSION FRACTURE [None]
  - COAGULOPATHY [None]
  - FEMUR FRACTURE [None]
  - DIARRHOEA [None]
  - BACK PAIN [None]
  - HIP FRACTURE [None]
  - TREMOR [None]
  - URINARY INCONTINENCE [None]
  - FLANK PAIN [None]
  - DYSLIPIDAEMIA [None]
  - CUSHINGOID [None]
  - QUALITY OF LIFE DECREASED [None]
  - SINUS BRADYCARDIA [None]
  - CARDIOMEGALY [None]
  - RESPIRATORY FAILURE [None]
  - DYSPHONIA [None]
  - RECTAL CANCER [None]
  - VITAMIN B12 DEFICIENCY [None]
  - HYPERPARATHYROIDISM [None]
  - ANGIOMYOLIPOMA [None]
  - EMPHYSEMA [None]
  - INJURY [None]
  - COLONIC POLYP [None]
  - PROTEINURIA [None]
  - DYSPNOEA EXERTIONAL [None]
  - ANAEMIA [None]
  - WOUND COMPLICATION [None]
  - OEDEMA PERIPHERAL [None]
  - LEUKOPENIA [None]
  - BONE LESION [None]
  - HYPERCALCAEMIA [None]
  - DECUBITUS ULCER [None]
  - TOOTHACHE [None]
  - HYDRONEPHROSIS [None]
  - ASTHENIA [None]
  - HYPOCHROMASIA [None]
  - GASTRIC ULCER [None]
  - DISCOMFORT [None]
  - DEFORMITY [None]
  - EMOTIONAL DISTRESS [None]
  - RENAL FAILURE CHRONIC [None]
  - BONE PAIN [None]
  - HYPOTENSION [None]
  - RENAL FAILURE ACUTE [None]
  - ABSCESS NECK [None]
  - CHEST PAIN [None]
  - CONFUSIONAL STATE [None]
  - DIVERTICULUM [None]
  - OEDEMA [None]
  - HEPATITIS [None]
  - TOOTH AVULSION [None]
  - HYPERGLYCAEMIA [None]
  - ABSCESS JAW [None]
  - ATELECTASIS [None]
  - PERIODONTAL DISEASE [None]
  - EXPOSED BONE IN JAW [None]
  - ABDOMINAL DISCOMFORT [None]
  - COUGH [None]
  - HEPATIC STEATOSIS [None]
  - SPINAL CORD COMPRESSION [None]
  - OVERDOSE [None]
  - PAIN [None]
  - COLON CANCER [None]
  - INTERVERTEBRAL DISC DEGENERATION [None]
  - PRURITUS [None]
  - NECROTISING FASCIITIS [None]
  - DEEP VEIN THROMBOSIS [None]
  - CHEST WALL ABSCESS [None]
  - PAIN IN JAW [None]
  - RENAL CYST [None]
  - ANISOCYTOSIS [None]
